FAERS Safety Report 6558700-3 (Version None)
Quarter: 2010Q1

REPORT INFORMATION
  Report Type: 
  Country: None (occurrence: None)
  Receive Date: 20100129
  Receipt Date: 20100118
  Transmission Date: 20100710
  Serious: Yes (Other)
  Sender: FDA-Public Use
  Company Number: US-PFIZER INC-2009305549

PATIENT
  Sex: Female
  Weight: 96.145 kg

DRUGS (17)
  1. CHANTIX [Suspect]
     Indication: SMOKING CESSATION THERAPY
     Dosage: 0.5 MG, 1X/DAY
     Route: 048
     Dates: start: 20090611, end: 20090901
  2. METHOTREXATE [Concomitant]
     Dosage: UNK
  3. LANOXIN [Concomitant]
     Dosage: UNK
  4. TRIAMTERENE AND HYDROCHLOROTHIAZIDE [Concomitant]
     Dosage: UNK
  5. FOLIC ACID [Concomitant]
     Dosage: UNK
  6. FUROSEMIDE [Concomitant]
     Dosage: UNK
  7. KLOR-CON [Concomitant]
     Dosage: UNK
  8. HYDROXYZINE [Concomitant]
     Dosage: UNK
  9. SIMVASTATIN [Concomitant]
     Dosage: UNK
  10. ESTROGENS CONJUGATED [Concomitant]
     Dosage: UNK
  11. PAROXETINE [Concomitant]
     Dosage: UNK
  12. AMBIEN [Concomitant]
     Dosage: UNK
  13. FISH OIL [Concomitant]
     Dosage: UNK
  14. VITAMIN D [Concomitant]
     Dosage: 400 MG, UNK
  15. VITAMIN C [Concomitant]
     Dosage: UNK
  16. ACETYLSALICYLIC ACID [Concomitant]
     Indication: RHEUMATOID ARTHRITIS
     Dosage: UNK
  17. ACETYLSALICYLIC ACID ENTERIC COATED [Concomitant]
     Indication: RHEUMATOID ARTHRITIS

REACTIONS (19)
  - ABNORMAL BEHAVIOUR [None]
  - ABNORMAL DREAMS [None]
  - AGITATION [None]
  - BLOOD POTASSIUM DECREASED [None]
  - DEPRESSION [None]
  - DRY SKIN [None]
  - DYSPHONIA [None]
  - HAEMORRHAGE [None]
  - HOSTILITY [None]
  - HYPOKINESIA [None]
  - IRRITABILITY [None]
  - OROPHARYNGEAL BLISTERING [None]
  - PHARYNGEAL MASS [None]
  - PHARYNGEAL OEDEMA [None]
  - RASH GENERALISED [None]
  - SKIN DISCOLOURATION [None]
  - SKIN EXFOLIATION [None]
  - SKIN WRINKLING [None]
  - SUICIDAL IDEATION [None]
